FAERS Safety Report 21830688 (Version 1)
Quarter: 2023Q1

REPORT INFORMATION
  Report Type: Spontaneous
  Country: US (occurrence: None)
  Receive Date: 20230105
  Receipt Date: 20230105
  Transmission Date: 20230418
  Serious: Yes (Life-Threatening, Hospitalization)
  Sender: FDA-Public Use
  Company Number: None

PATIENT
  Age: 79 Year
  Sex: Male
  Weight: 77.5 kg

DRUGS (5)
  1. DEFINITY [Suspect]
     Active Substance: PERFLUTREN
     Indication: Contrast echocardiogram
     Dosage: OTHER FREQUENCY : RAD ONCE;?
     Route: 042
     Dates: start: 20230101, end: 20230101
  2. calcium carbonate (Tums) chewable tablet 500 mg [Concomitant]
     Dates: start: 20230101, end: 20230101
  3. enoxaparin (LOVENOX) injection 80 mg [Concomitant]
     Dates: start: 20230101, end: 20230101
  4. hydrALAZINE (Apresoline) tablet 50 mg [Concomitant]
     Dates: start: 20230101, end: 20230101
  5. sucralfate (Carafate) tablet 1 g [Concomitant]
     Dates: start: 20230101, end: 20230102

REACTIONS (1)
  - Anaphylactic reaction [None]

NARRATIVE: CASE EVENT DATE: 20230101
